FAERS Safety Report 9318950 (Version 1)
Quarter: 2013Q2

REPORT INFORMATION
  Report Type: Spontaneous
  Country: NO (occurrence: None)
  Receive Date: 20130524
  Receipt Date: 20130524
  Transmission Date: 20140414
  Serious: Yes (Death, Other)
  Sender: FDA-Public Use
  Company Number: 2013P1006363

PATIENT
  Age: 72 Year
  Sex: Male

DRUGS (2)
  1. LANOXIN [Suspect]
  2. DIGITOXIN [Suspect]

REACTIONS (3)
  - Decreased appetite [None]
  - Visual impairment [None]
  - Cardiac arrest [None]
